FAERS Safety Report 7730094-7 (Version None)
Quarter: 2011Q3

REPORT INFORMATION
  Report Type: 
  Country: None (occurrence: None)
  Receive Date: 20110906
  Receipt Date: 20110831
  Transmission Date: 20111222
  Serious: Yes (Other)
  Sender: FDA-Public Use
  Company Number: BR-PFIZER INC-2011204500

PATIENT
  Age: 55 Year
  Sex: Female
  Weight: 54 kg

DRUGS (6)
  1. BROMOPRIDE [Concomitant]
     Dosage: 10 MG, EVERY 8 HOURS AS NEEDED
     Route: 042
  2. ACICLOVIR [Concomitant]
     Dosage: 400 MG, EVERY 12 HOURS
     Route: 042
  3. VFEND [Suspect]
     Dosage: 400 MG, EVERY 12 HOURS
     Route: 042
  4. DIPIRONA [Concomitant]
     Dosage: 1 G, EVERY 4 HRS AS NEEDED
     Route: 042
  5. ONDASETRON [Concomitant]
     Dosage: 8 MG, EVERY 4 HRS
     Route: 042
  6. URSODEOXYCHOLIC ACID [Concomitant]
     Dosage: 300 MG, EVERY 12 HOURS
     Route: 048

REACTIONS (4)
  - HALLUCINATION, AUDITORY [None]
  - EUPHORIC MOOD [None]
  - SLEEP DISORDER [None]
  - HALLUCINATION, VISUAL [None]
